FAERS Safety Report 5943303-1 (Version None)
Quarter: 2008Q4

REPORT INFORMATION
  Report Type: 
  Country: None (occurrence: None)
  Receive Date: 20081106
  Receipt Date: 20081029
  Transmission Date: 20090506
  Serious: Yes (Other)
  Sender: FDA-Public Use
  Company Number: PHHY2008CA21014

PATIENT
  Sex: Male

DRUGS (1)
  1. CLOZARIL [Suspect]
     Indication: SCHIZOPHRENIA
     Dosage: 150 MG, UNK
     Route: 048
     Dates: start: 20080820, end: 20080908

REACTIONS (6)
  - ASTHENIA [None]
  - HEART RATE ABNORMAL [None]
  - NAUSEA [None]
  - VENTRICULAR ASYSTOLE [None]
  - VENTRICULAR EXTRASYSTOLES [None]
  - VOMITING [None]
